FAERS Safety Report 8322792-1 (Version None)
Quarter: 2012Q2

REPORT INFORMATION
  Report Type: 
  Country: None (occurrence: None)
  Receive Date: 20120430
  Receipt Date: 20120424
  Transmission Date: 20120825
  Serious: Yes (Death, Other)
  Sender: FDA-Public Use
  Company Number: AT-ASTRAZENECA-2012SE26485

PATIENT
  Age: 20 Year
  Sex: Male

DRUGS (6)
  1. SEROQUEL [Suspect]
     Indication: DRUG DEPENDENCE
     Route: 048
     Dates: start: 20100401
  2. PHENOBARBITAL TAB [Suspect]
     Indication: DRUG DEPENDENCE
  3. SEROQUEL [Suspect]
     Route: 048
     Dates: start: 20100401
  4. METHADONE HCL [Suspect]
     Dates: start: 20100701
  5. ANTIDEPRESSANTS [Concomitant]
  6. SEROQUEL [Suspect]
     Route: 048
     Dates: start: 20100401

REACTIONS (3)
  - OVERDOSE [None]
  - CARDIAC ARREST [None]
  - OFF LABEL USE [None]
